FAERS Safety Report 4992731-X (Version None)
Quarter: 2006Q1

REPORT INFORMATION
  Report Type: 
  Country: None (occurrence: None)
  Receive Date: 20060316
  Receipt Date: 20051108
  Transmission Date: 20060701
  Serious: Yes (Other)
  Sender: FDA-Public Use
  Company Number: 22283

PATIENT
  Sex: Female

DRUGS (4)
  1. PAMIDRONATE DISODIUM [Suspect]
     Indication: OSTEOPOROSIS
     Dates: start: 20051005
  2. ALLEGRA [Concomitant]
  3. PLAQUENIL [Concomitant]
  4. PREDNISONE [Concomitant]

REACTIONS (2)
  - FLUSHING [None]
  - SWELLING [None]
